FAERS Safety Report 6414290-7 (Version None)
Quarter: 2009Q4

REPORT INFORMATION
  Report Type: 
  Country: None (occurrence: None)
  Receive Date: 20091026
  Receipt Date: 20091016
  Transmission Date: 20100525
  Serious: Yes (Hospitalization)
  Sender: FDA-Public Use
  Company Number: ES-JNJFOC-20090807020

PATIENT
  Age: 79 Year
  Sex: Female

DRUGS (3)
  1. HALOPERIDOL [Suspect]
     Indication: DELUSIONAL DISORDER, PERSECUTORY TYPE
     Dosage: FOR 6 MONTHS
     Route: 065
  2. RISPERIDONE [Suspect]
     Indication: PSYCHOTIC DISORDER
     Dosage: 18 MONTHS
     Route: 065
  3. OLANZAPINE [Suspect]
     Indication: PSYCHOTIC DISORDER
     Dosage: 12 MONTHS
     Route: 065

REACTIONS (5)
  - ABASIA [None]
  - CEREBRAL ATROPHY [None]
  - COGWHEEL RIGIDITY [None]
  - DYSKINESIA [None]
  - MASTICATION DISORDER [None]
